FAERS Safety Report 11416837 (Version 2)
Quarter: 2015Q3

REPORT INFORMATION
  Report Type: Report from Study
  Country: US (occurrence: US)
  Receive Date: 20150825
  Receipt Date: 20150903
  Transmission Date: 20151125
  Serious: Yes (Hospitalization, Other)
  Sender: FDA-Public Use
  Company Number: PHHY2013US145573

PATIENT
  Age: 49 Year
  Sex: Female
  Weight: 59 kg

DRUGS (1)
  1. ZYKADIA [Suspect]
     Active Substance: CERITINIB
     Indication: LUNG ADENOCARCINOMA
     Dosage: 750 MG, UNK
     Route: 048
     Dates: start: 20131115, end: 20140118

REACTIONS (12)
  - Arthralgia [Unknown]
  - Asthenia [Unknown]
  - Face oedema [Unknown]
  - Hyperglycaemia [Recovered/Resolved]
  - Thrombocytopenia [Unknown]
  - Stomatitis [Recovered/Resolved]
  - Gait disturbance [Unknown]
  - Neutropenia [Unknown]
  - Dyspnoea [Unknown]
  - Confusional state [Unknown]
  - Pneumonia [Recovered/Resolved]
  - Wheezing [Recovered/Resolved]

NARRATIVE: CASE EVENT DATE: 2012
